FAERS Safety Report 17535114 (Version 1)
Quarter: 2020Q1

REPORT INFORMATION
  Report Type: Spontaneous
  Country: US (occurrence: US)
  Receive Date: 20200305
  Receipt Date: 20200305
  Transmission Date: 20200409
  Serious: No
  Sender: FDA-Public Use
  Company Number: None

PATIENT
  Age: 59 Year
  Sex: Male

DRUGS (1)
  1. MAYZENT [Suspect]
     Active Substance: SIPONIMOD
     Route: 048
     Dates: start: 202002

REACTIONS (6)
  - Headache [None]
  - Depressed level of consciousness [None]
  - Mobility decreased [None]
  - Visual impairment [None]
  - Sluggishness [None]
  - Feeling abnormal [None]

NARRATIVE: CASE EVENT DATE: 20200305
